FAERS Safety Report 5371544-3 (Version None)
Quarter: 2007Q2

REPORT INFORMATION
  Report Type: 
  Country: None (occurrence: None)
  Receive Date: 20070625
  Receipt Date: 20070625
  Transmission Date: 20071010
  Serious: No
  Sender: FDA-Public Use
  Company Number: None

PATIENT
  Age: 4 Year
  Sex: Female

DRUGS (1)
  1. ADAGEN [Suspect]
     Indication: DRUG USE FOR UNKNOWN INDICATION
     Dosage: SEE CONT PAGE

REACTIONS (1)
  - LABORATORY TEST ABNORMAL [None]
